FAERS Safety Report 17917061 (Version 2)
Quarter: 2020Q2

REPORT INFORMATION
  Report Type: Report from Study
  Country: US (occurrence: US)
  Receive Date: 20200619
  Receipt Date: 20200629
  Transmission Date: 20200714
  Serious: Yes (Life-Threatening, Hospitalization)
  Sender: FDA-Public Use
  Company Number: US-HORIZON-KRY-0722-2020

PATIENT
  Age: 84 Year
  Sex: Female
  Weight: 88.45 kg

DRUGS (12)
  1. KRYSTEXXA [Suspect]
     Active Substance: PEGLOTICASE
     Indication: GOUTY TOPHUS
     Dosage: 8MG IV EVERY 14 DAYS FOR 180 DAYS
     Route: 042
     Dates: start: 20190117, end: 20200504
  2. FERROUS SULFATE. [Concomitant]
     Active Substance: FERROUS SULFATE
  3. RAMIPRIL. [Concomitant]
     Active Substance: RAMIPRIL
  4. LABETALOL [Concomitant]
     Active Substance: LABETALOL\LABETALOL HYDROCHLORIDE
  5. MINOXIDIL. [Concomitant]
     Active Substance: MINOXIDIL
  6. FUROSEMIDE. [Concomitant]
     Active Substance: FUROSEMIDE
  7. DILTIAZEM. [Concomitant]
     Active Substance: DILTIAZEM
  8. ATORVASTATIN [Concomitant]
     Active Substance: ATORVASTATIN
  9. METHYLPREDNISOLONE. [Concomitant]
     Active Substance: METHYLPREDNISOLONE
     Indication: PREMEDICATION
  10. ASPIR-81 [Concomitant]
     Active Substance: ASPIRIN
  11. ELIQUIS [Concomitant]
     Active Substance: APIXABAN
  12. DIPHENHYDRAMINE. [Concomitant]
     Active Substance: DIPHENHYDRAMINE
     Indication: PREMEDICATION

REACTIONS (2)
  - Cerebrovascular accident [Unknown]
  - Arthralgia [Recovered/Resolved]

NARRATIVE: CASE EVENT DATE: 20200505
